FAERS Safety Report 9260113 (Version 2)
Quarter: 2013Q4

REPORT INFORMATION
  Report Type: Spontaneous
  Country: US (occurrence: US)
  Receive Date: 20130429
  Receipt Date: 20131227
  Transmission Date: 20140711
  Serious: Yes (Other)
  Sender: FDA-Public Use
  Company Number: US-ASTRAZENECA-2005UW06126

PATIENT
  Age: 57 Year
  Sex: Female

DRUGS (24)
  1. NEXIUM [Suspect]
     Indication: GASTROOESOPHAGEAL REFLUX DISEASE
     Route: 048
     Dates: start: 2003, end: 2006
  2. NEXIUM [Suspect]
     Indication: DYSPEPSIA
     Route: 048
     Dates: start: 2003, end: 2006
  3. NEXIUM [Suspect]
     Indication: GASTROOESOPHAGEAL REFLUX DISEASE
     Route: 048
     Dates: start: 20030619
  4. NEXIUM [Suspect]
     Indication: DYSPEPSIA
     Route: 048
     Dates: start: 20030619
  5. ARIMIDEX [Suspect]
     Indication: BREAST CANCER
     Route: 048
     Dates: start: 200402
  6. ARIMIDEX [Suspect]
     Indication: BREAST CANCER
     Route: 048
     Dates: start: 20031121
  7. OMEPRAZOLE [Suspect]
     Indication: DYSPEPSIA
     Route: 048
  8. ASACOL [Concomitant]
  9. STOOL SOFTENER [Concomitant]
  10. XANAX [Concomitant]
  11. FOSAMAX [Concomitant]
  12. NEURONTIN [Concomitant]
  13. PRAVACHOL [Concomitant]
  14. LEXAPRO [Concomitant]
  15. MEDICATION FOR CROHN^S [Concomitant]
  16. TUMS OTC [Concomitant]
  17. ZOFRAN [Concomitant]
     Dates: start: 20030422
  18. PROCHLORPERAZINE [Concomitant]
     Dates: start: 20030422
  19. TEMAZEPAM [Concomitant]
     Dates: start: 20030712
  20. VALTREX [Concomitant]
  21. CLONAZEPAM [Concomitant]
  22. SERTRALINE [Concomitant]
     Route: 048
  23. TRAZADONE [Concomitant]
     Route: 048
  24. PERCOCET [Concomitant]
     Dosage: 5 MG-325 MG
     Route: 048

REACTIONS (21)
  - Stress fracture [Unknown]
  - Wrist fracture [Unknown]
  - Upper limb fracture [Unknown]
  - Convulsion [Unknown]
  - Amnesia [Unknown]
  - Hypercholesterolaemia [Unknown]
  - Osteopenia [Unknown]
  - Osteoporosis [Unknown]
  - Mood swings [Unknown]
  - Confusional state [Unknown]
  - Arthralgia [Unknown]
  - Agitation [Unknown]
  - Hot flush [Unknown]
  - Vulvovaginal dryness [Unknown]
  - Dry skin [Unknown]
  - Myalgia [Unknown]
  - Bone pain [Unknown]
  - Bone disorder [Unknown]
  - Multiple fractures [Unknown]
  - Ankle fracture [Unknown]
  - Foot fracture [Unknown]
